FAERS Safety Report 7329364-6 (Version None)
Quarter: 2011Q1

REPORT INFORMATION
  Report Type: 
  Country: None (occurrence: None)
  Receive Date: 20110303
  Receipt Date: 20110228
  Transmission Date: 20110831
  Serious: Yes (Other)
  Sender: FDA-Public Use
  Company Number: CHPA2011US03384

PATIENT
  Age: 18 Year
  Sex: Female
  Weight: 54.422 kg

DRUGS (1)
  1. 4 WAY FAST ACTING NASAL SPRAY [Suspect]
     Indication: HYPERSENSITIVITY
     Dosage: 2 SPRAYS EACH NOSTRIL, 10 TIMES A DAY
     Route: 045
     Dates: start: 20101201

REACTIONS (4)
  - INTENTIONAL DRUG MISUSE [None]
  - DRUG DEPENDENCE [None]
  - DRUG INEFFECTIVE [None]
  - OVERDOSE [None]
